FAERS Safety Report 14071061 (Version 1)
Quarter: 2017Q4

REPORT INFORMATION
  Report Type: Spontaneous
  Country: FR (occurrence: FR)
  Receive Date: 20171011
  Receipt Date: 20171011
  Transmission Date: 20180321
  Serious: Yes (Hospitalization)
  Sender: FDA-Public Use
  Company Number: FR-ACCORD-059801

PATIENT
  Age: 71 Year
  Sex: Male

DRUGS (6)
  1. PANTOPRAZOLE [Concomitant]
     Active Substance: PANTOPRAZOLE
     Dosage: IN THE MORNING
  2. FLUOROURACILE ACCORD [Suspect]
     Active Substance: FLUOROURACIL
     Indication: ADENOCARCINOMA OF COLON
     Dosage: STRENGTH - 50 MG/ML
     Route: 042
     Dates: start: 20170811
  3. OXALIPLATIN. [Suspect]
     Active Substance: OXALIPLATIN
     Indication: ADENOCARCINOMA OF COLON
     Route: 042
     Dates: start: 20170811
  4. ATORVASTATIN [Concomitant]
     Active Substance: ATORVASTATIN
     Dosage: IN THE EVENING
  5. XATRAL [Concomitant]
     Active Substance: ALFUZOSIN
     Dosage: IN THE MORNING
  6. FOLINIC ACID [Concomitant]
     Active Substance: LEUCOVORIN

REACTIONS (5)
  - Hemiplegia [Recovered/Resolved]
  - Transient ischaemic attack [Unknown]
  - Headache [Recovered/Resolved]
  - Speech disorder [Recovered/Resolved]
  - Facial paralysis [Recovered/Resolved]

NARRATIVE: CASE EVENT DATE: 20170811
